FAERS Safety Report 26168631 (Version 1)
Quarter: 2025Q4

REPORT INFORMATION
  Report Type: Spontaneous
  Country: US (occurrence: US)
  Receive Date: 20251217
  Receipt Date: 20251217
  Transmission Date: 20260119
  Serious: Yes (Hospitalization, Disabling, Other)
  Sender: ACCORD
  Company Number: US-Accord-516406

PATIENT
  Age: 75 Year
  Sex: Female

DRUGS (4)
  1. FLUOROURACIL [Suspect]
     Active Substance: FLUOROURACIL
     Indication: Anal squamous cell carcinoma
     Dosage: CONTINUOUS INFUSION OVER 96 HOURS FOR 2 CYCLES
  2. MITOMYCIN [Suspect]
     Active Substance: MITOMYCIN
     Indication: Anal squamous cell carcinoma
     Dosage: ADMINISTERED OVER 30 MIN
  3. MITOMYCIN [Suspect]
     Active Substance: MITOMYCIN
     Indication: Anal cancer stage III
     Dosage: ADMINISTERED OVER 30 MIN
  4. FLUOROURACIL [Suspect]
     Active Substance: FLUOROURACIL
     Indication: Anal cancer stage III
     Dosage: CONTINUOUS INFUSION OVER 96 HOURS FOR 2 CYCLES

REACTIONS (10)
  - Stomatitis [Recovering/Resolving]
  - Neutropenia [Recovering/Resolving]
  - Diarrhoea [Unknown]
  - Nausea [Unknown]
  - Vomiting [Unknown]
  - Dyspnoea [Unknown]
  - Malnutrition [Unknown]
  - Respiratory tract congestion [Unknown]
  - Productive cough [Unknown]
  - Urinary tract infection bacterial [Unknown]
